FAERS Safety Report 9223684 (Version 1)
Quarter: 2013Q2

REPORT INFORMATION
  Report Type: Report from Study
  Country: US (occurrence: US)
  Receive Date: 20130410
  Receipt Date: 20130410
  Transmission Date: 20140414
  Serious: Yes (Death, Hospitalization)
  Sender: FDA-Public Use
  Company Number: US-PFIZER INC-2013104527

PATIENT
  Age: 77 Year
  Sex: Female
  Weight: 70.1 kg

DRUGS (4)
  1. BLINDED CELECOXIB [Suspect]
     Indication: NON-SMALL CELL LUNG CANCER
     Dosage: CYCLE 1-6 AND CYCLE 7+: 400 MG, 2X/DAY DAYS 1 TO 21
     Route: 048
     Dates: start: 20121116
  2. BLINDED PLACEBO [Suspect]
     Indication: NON-SMALL CELL LUNG CANCER
     Dosage: CYCLE 1-6 AND CYCLE 7+: 400 MG, 2X/DAY DAYS 1 TO 21
     Route: 048
     Dates: start: 20121116
  3. CARBOPLATIN [Suspect]
     Indication: NON-SMALL CELL LUNG CANCER
     Dosage: CYCLES 1-6, AUC= 5.5 DAY 1 (AUC=5.0 WITH PRIOR CHEST RADIOTHERAPY)
     Route: 042
     Dates: start: 20121116
  4. GEMCITABINE HYDROCHLORIDE [Suspect]
     Indication: NON-SMALL CELL LUNG CANCER
     Dosage: CYCLE 1-6, 1000 MG/M2 IV DAYS 1 AND 8
     Route: 042
     Dates: start: 20121116

REACTIONS (5)
  - Respiratory failure [Fatal]
  - Embolism [Unknown]
  - Atrial fibrillation [Unknown]
  - Supraventricular tachycardia [Unknown]
  - Ventricular tachycardia [Unknown]
